FAERS Safety Report 8262919-3 (Version None)
Quarter: 2012Q2

REPORT INFORMATION
  Report Type: 
  Country: None (occurrence: None)
  Receive Date: 20120405
  Receipt Date: 20120326
  Transmission Date: 20120825
  Serious: Yes (Hospitalization, Other)
  Sender: FDA-Public Use
  Company Number: JP-GLAXOSMITHKLINE-B0792423A

PATIENT
  Age: 61 Year
  Sex: Male

DRUGS (3)
  1. LAMICTAL [Suspect]
     Indication: EPILEPSY
     Route: 048
     Dates: start: 20100301
  2. TEGRETOL [Concomitant]
     Indication: EPILEPSY
     Route: 048
  3. PHENYTOIN SODIUM CAP [Concomitant]
     Indication: EPILEPSY
     Route: 048
     Dates: start: 20040101

REACTIONS (10)
  - RASH [None]
  - PAPULE [None]
  - WHITE BLOOD CELL COUNT INCREASED [None]
  - PYREXIA [None]
  - HEPATIC FUNCTION ABNORMAL [None]
  - ERYTHEMA [None]
  - EOSINOPHIL COUNT INCREASED [None]
  - PURPURA [None]
  - RASH PUSTULAR [None]
  - LYMPHOCYTE STIMULATION TEST POSITIVE [None]
